FAERS Safety Report 18807804 (Version 1)
Quarter: 2021Q1

REPORT INFORMATION
  Report Type: Spontaneous
  Country: US (occurrence: US)
  Receive Date: 20210129
  Receipt Date: 20210129
  Transmission Date: 20210419
  Serious: Yes (Hospitalization)
  Sender: FDA-Public Use
  Company Number: None

PATIENT
  Age: 74 Year
  Sex: Female
  Weight: 65.3 kg

DRUGS (13)
  1. AMLODIPINE 5 MG PO DAILY [Concomitant]
     Dates: start: 20210114, end: 20210122
  2. PANTOPRAZOLE EC TABLET 40 MG DAILY [Concomitant]
     Dates: start: 20210114, end: 20210123
  3. FUROSEMIDE INJECTION [Concomitant]
     Active Substance: FUROSEMIDE
  4. BARICITINIB. [Suspect]
     Active Substance: BARICITINIB
     Indication: COVID-19 PNEUMONIA
     Route: 048
     Dates: start: 20210120, end: 20210127
  5. REMDESIVIR 200 MG IV X 1 FOLLOWED BY 100MG IV DAILY [Concomitant]
     Dates: start: 20210113, end: 20210122
  6. GUAIFENESIN ER TABLET 600 MG Q12H [Concomitant]
     Dates: start: 20210114, end: 20210123
  7. CORRECTIONAL DOSE INSULIN LISPRO SUBQ [Concomitant]
     Dates: start: 20210113, end: 20210123
  8. CORRECTIONAL DOSE INSULIN REGULAR SUBQ [Concomitant]
     Dates: start: 20210123
  9. ATORVASTATIN 40 MG PO DAILY [Concomitant]
     Dates: start: 20210114
  10. DECADRON 6 MG PO Q12H [Concomitant]
     Dates: start: 20210118, end: 20210124
  11. DECADRON 6 MG PO DAILY [Concomitant]
     Dates: start: 20210114, end: 20210118
  12. ENOXAPARIN 40 MG SUBQ Q24H [Concomitant]
     Dates: start: 20210113, end: 20210128
  13. ASPRIRIN CHEWABLE TABLE 81 MG PO DAILY [Concomitant]
     Dates: start: 20210114

REACTIONS (5)
  - Alanine aminotransferase increased [None]
  - Intentional product use issue [None]
  - Drug-induced liver injury [None]
  - Condition aggravated [None]
  - Aspartate aminotransferase increased [None]

NARRATIVE: CASE EVENT DATE: 20210127
